FAERS Safety Report 4682740-2 (Version None)
Quarter: 2005Q2

REPORT INFORMATION
  Report Type: 
  Country: None (occurrence: None)
  Receive Date: 20050606
  Receipt Date: 20050527
  Transmission Date: 20051028
  Serious: Yes (Hospitalization)
  Sender: FDA-Public Use
  Company Number: PHHO2005JP08584

PATIENT
  Age: 80 Year
  Sex: Female

DRUGS (6)
  1. DIOVAN [Suspect]
     Indication: HYPERTENSION
     Dosage: 80 MG/DAY
     Route: 048
     Dates: start: 20021112
  2. CONIEL [Concomitant]
  3. FLUITRAN [Concomitant]
     Indication: HYPERTENSION
  4. MYONAL [Concomitant]
     Indication: TENSION HEADACHE
  5. CERCINE [Concomitant]
     Indication: TENSION HEADACHE
  6. MYSLEE [Concomitant]
     Indication: INSOMNIA

REACTIONS (1)
  - GASTRIC ULCER [None]
